FAERS Safety Report 8178265-2 (Version None)
Quarter: 2012Q1

REPORT INFORMATION
  Report Type: 
  Country: None (occurrence: None)
  Receive Date: 20120301
  Receipt Date: 20120222
  Transmission Date: 20120608
  Serious: Yes (Other)
  Sender: FDA-Public Use
  Company Number: US-BAYER-2012-017971

PATIENT

DRUGS (2)
  1. NEO-SYNEPHRINE REGULAR STRENGTH [Suspect]
     Route: 055
  2. BENADRYL [Concomitant]

REACTIONS (2)
  - CHOKING [None]
  - DYSPNOEA [None]
